FAERS Safety Report 15778099 (Version 3)
Quarter: 2019Q1

REPORT INFORMATION
  Report Type: Spontaneous
  Country: US (occurrence: US)
  Receive Date: 20181231
  Receipt Date: 20190212
  Transmission Date: 20190417
  Serious: Yes (Disabling, Other)
  Sender: FDA-Public Use
  Company Number: US-JUBILANT CADISTA PHARMACEUTICALS-2018JUB00543

PATIENT
  Age: 55 Year
  Sex: Female
  Weight: 56.8 kg

DRUGS (3)
  1. UNSPECIFIED ANTI-VIRALS [Suspect]
     Active Substance: UNSPECIFIED INGREDIENT
  2. PREDNISONE. [Suspect]
     Active Substance: PREDNISONE
     Indication: GRAFT VERSUS HOST DISEASE
     Route: 048
  3. INCB039110 (ITACITINIB) OR PLACEBO (INCB039110) [Suspect]
     Active Substance: ITACITINIB
     Indication: GRAFT VERSUS HOST DISEASE
     Dosage: 200 MG, 1X/DAY
     Route: 048
     Dates: start: 20180817, end: 20180830

REACTIONS (2)
  - Hypertriglyceridaemia [Recovered/Resolved]
  - Hypercholesterolaemia [Recovered/Resolved]

NARRATIVE: CASE EVENT DATE: 20180823
